FAERS Safety Report 8309068-3 (Version None)
Quarter: 2012Q2

REPORT INFORMATION
  Report Type: 
  Country: None (occurrence: None)
  Receive Date: 20120424
  Receipt Date: 20120416
  Transmission Date: 20120825
  Serious: Yes (Hospitalization)
  Sender: FDA-Public Use
  Company Number: JP-ABBOTT-11P-087-0715144-00

PATIENT
  Sex: Female
  Weight: 47 kg

DRUGS (33)
  1. LEVOMEPROMAZINE MALEATE [Concomitant]
     Indication: PROPHYLAXIS
  2. TRAZODONE HCL [Concomitant]
     Indication: DEPRESSION
     Route: 048
     Dates: start: 20110208
  3. TRAZODONE HCL [Concomitant]
     Indication: PROPHYLAXIS
  4. CELECOXIB [Concomitant]
     Indication: PRODUCT USED FOR UNKNOWN INDICATION
     Dosage: 400MG DAILY
     Route: 048
  5. CROTAMITON [Concomitant]
     Indication: ASTEATOSIS
     Route: 061
  6. KETOPROFEN [Concomitant]
     Indication: PAIN
     Route: 061
  7. POTASSIUM CHLORIDE [Concomitant]
     Indication: HYPOKALAEMIA
     Route: 048
     Dates: start: 20110204
  8. POVIDONE-IODINE (FORMULA 47) [Concomitant]
     Indication: PROPHYLAXIS
  9. PREDNISOLONE [Concomitant]
     Dates: start: 20110310, end: 20110314
  10. HUMIRA [Suspect]
     Dates: end: 20110228
  11. MECOBALAMIN [Concomitant]
     Indication: NEUROPATHY PERIPHERAL
     Route: 048
     Dates: start: 20110208, end: 20110215
  12. RABEPRAZOLE SODIUM [Concomitant]
     Indication: ULCER
     Route: 048
     Dates: start: 20110208
  13. SPIRONOLACTONE [Concomitant]
     Indication: PRODUCT USED FOR UNKNOWN INDICATION
     Dosage: 5MG DAILY
     Route: 048
     Dates: start: 20110314
  14. LOXOPROFEN SODIUM [Concomitant]
     Indication: PYREXIA
     Route: 061
  15. LACTOMIN [Concomitant]
     Indication: PRODUCT USED FOR UNKNOWN INDICATION
     Dates: start: 20110208
  16. CHINESE HERBAL MEDICINE (SHAKUYAKUKANZOTO) [Concomitant]
     Indication: MYALGIA
     Route: 048
     Dates: start: 20110208, end: 20110215
  17. FLUNITRAZEPAM [Concomitant]
     Indication: PROPHYLAXIS
  18. METOCLOPRAMIDE [Concomitant]
     Indication: NAUSEA
     Route: 048
  19. PREDNISOLONE [Concomitant]
     Route: 048
     Dates: start: 20110303, end: 20110309
  20. PREDNISOLONE [Concomitant]
     Route: 048
     Dates: start: 20110315
  21. HUMIRA [Suspect]
     Indication: CROHN'S DISEASE
     Dosage: 160 MG ONCE
     Route: 058
     Dates: start: 20110208, end: 20110208
  22. HUMIRA [Suspect]
     Dates: start: 20110308, end: 20110308
  23. ANTI-HEMORRHOID DRUG [Concomitant]
     Indication: PRODUCT USED FOR UNKNOWN INDICATION
     Route: 061
  24. FLUNITRAZEPAM [Concomitant]
     Indication: DEPRESSION
     Route: 048
     Dates: start: 20110208
  25. LOXOPROFEN SODIUM [Concomitant]
     Indication: PAIN
     Route: 048
     Dates: start: 20110124
  26. ANTIBIOTICS-RESISTANT LACTIC ACID BACTERIAE [Concomitant]
     Indication: DIARRHOEA
     Route: 048
  27. PREDNISOLONE [Concomitant]
     Indication: CROHN'S DISEASE
     Dates: start: 20110210
  28. LOPERAMIDE HCL [Concomitant]
     Indication: PRODUCT USED FOR UNKNOWN INDICATION
     Dates: start: 20110131
  29. POVIDONE-IODINE (FORMULA 47) [Concomitant]
     Indication: PHARYNGITIS
  30. LEVOMEPROMAZINE MALEATE [Concomitant]
     Indication: INSOMNIA
     Route: 048
     Dates: start: 20110208
  31. RABEPRAZOLE SODIUM [Concomitant]
     Indication: PROPHYLAXIS
  32. COLIBACILLUS VACCINE_HYDROCORTISONE [Concomitant]
     Indication: PAIN
     Dosage: AS NEEDED FOR PAIN
     Route: 061
  33. PREDNISOLONE [Concomitant]
     Route: 048
     Dates: start: 20110213, end: 20110302

REACTIONS (6)
  - BLOOD ALBUMIN DECREASED [None]
  - ASCITES [None]
  - MELAENA [None]
  - LIVER DISORDER [None]
  - C-REACTIVE PROTEIN INCREASED [None]
  - RECTAL ULCER HAEMORRHAGE [None]
